FAERS Safety Report 5175455-8 (Version None)
Quarter: 2006Q4

REPORT INFORMATION
  Report Type: 
  Country: None (occurrence: None)
  Receive Date: 20061215
  Receipt Date: 20061201
  Transmission Date: 20070319
  Serious: Yes (Other)
  Sender: FDA-Public Use
  Company Number: PHBS2006BE18662

PATIENT
  Sex: Female

DRUGS (1)
  1. CAFERGOT [Suspect]

REACTIONS (1)
  - CARDIAC VALVE DISEASE [None]
